FAERS Safety Report 6997717-1 (Version None)
Quarter: 2010Q3

REPORT INFORMATION
  Report Type: 
  Country: None (occurrence: None)
  Receive Date: 20100918
  Receipt Date: 20091210
  Transmission Date: 20110219
  Serious: No
  Sender: FDA-Public Use
  Company Number: US-WYE-H12603009

PATIENT
  Age: 67 Year
  Sex: Female
  Weight: 64.92 kg

DRUGS (4)
  1. ADVIL PM [Suspect]
     Indication: PAIN
     Route: 048
     Dates: start: 20091201, end: 20091207
  2. LOVASTATIN [Concomitant]
  3. LEVOTHYROXINE [Concomitant]
  4. LISINOPRIL [Concomitant]

REACTIONS (4)
  - ABDOMINAL DISCOMFORT [None]
  - DIZZINESS [None]
  - HANGOVER [None]
  - HEADACHE [None]
